FAERS Safety Report 18326489 (Version 1)
Quarter: 2020Q3

REPORT INFORMATION
  Report Type: Spontaneous
  Country: FR (occurrence: FR)
  Receive Date: 20200930
  Receipt Date: 20200930
  Transmission Date: 20201103
  Serious: Yes (Other)
  Sender: FDA-Public Use
  Company Number: FR-AUROBINDO-AUR-APL-2020-032064

PATIENT
  Age: 28 Year
  Sex: Male

DRUGS (17)
  1. PAROXETINE ARROW 20 MG FILM?COATED TABLETS [Interacting]
     Active Substance: PAROXETINE
     Dosage: 20 MILLIGRAM, DAILY, IN THE MORNING
     Route: 048
     Dates: start: 20200723
  2. DIAZEPAM. [Concomitant]
     Active Substance: DIAZEPAM
     Indication: ANXIETY
     Dosage: 1 DOSAGE FORM, TWO TIMES A DAY  IN THE MORNING, AT NOON AND IN THE EVENING
     Route: 065
  3. AKINETON [Concomitant]
     Active Substance: BIPERIDEN HYDROCHLORIDE
     Indication: EXTRAPYRAMIDAL DISORDER
     Dosage: 1 DOSAGE FORM, TWO TIMES A DAY IN THE MORNING AND THE EVENING
     Route: 065
  4. CLOZAPINE ARROW 25 MG TABLETS BREAKABLE [Interacting]
     Active Substance: CLOZAPINE
     Dosage: 250 MILLIGRAM, ONCE A DAY
     Route: 065
  5. PAROXETINE. [Interacting]
     Active Substance: PAROXETINE
     Indication: DEPRESSION
     Dosage: 20 MILLIGRAM, DAILY EVERY MORNING
     Route: 048
     Dates: start: 20200608
  6. HALDOL [Concomitant]
     Active Substance: HALOPERIDOL
     Indication: PRODUCT USED FOR UNKNOWN INDICATION
     Dosage: 2 DOSAGE FORM, DAILY
     Route: 065
  7. PAROXETINE ARROW 20 MG FILM?COATED TABLETS [Interacting]
     Active Substance: PAROXETINE
     Dosage: 20 MILLIGRAM, EVERY OTHER DAY FOR 10 DAYS
     Route: 048
     Dates: start: 20200625
  8. PAROXETINE ARROW 20 MG FILM?COATED TABLETS [Interacting]
     Active Substance: PAROXETINE
     Dosage: 20 MILLIGRAM, DAILY
     Route: 048
     Dates: start: 20200813
  9. PAROXETINE. [Interacting]
     Active Substance: PAROXETINE
     Dosage: 20 MILLIGRAM, DAILY IN THE MORNING
     Route: 048
     Dates: start: 20200723
  10. PAROXETINE. [Interacting]
     Active Substance: PAROXETINE
     Dosage: 20 MILLIGRAM, DAILY
     Route: 048
     Dates: start: 20200813
  11. CLOZAPINE. [Interacting]
     Active Substance: CLOZAPINE
     Indication: SCHIZOPHRENIA
     Dosage: 1 DOSAGE FORM, TWO TIMES A DAY
     Route: 048
     Dates: start: 202006
  12. CLOZAPINE. [Interacting]
     Active Substance: CLOZAPINE
     Dosage: 1 DOSAGE FORM, TWO TIMES A DAY
     Route: 048
     Dates: start: 20200813
  13. PAROXETINE ARROW 20 MG FILM?COATED TABLETS [Interacting]
     Active Substance: PAROXETINE
     Indication: DEPRESSION
     Dosage: 20 MILLIGRAM, DAILY EVERY MORNING
     Route: 048
     Dates: start: 20200608
  14. CLOZAPINE MYLAN [Interacting]
     Active Substance: CLOZAPINE
     Indication: SCHIZOPHRENIA
     Dosage: 225 MILLIGRAM, DAILY
     Route: 048
     Dates: start: 2017, end: 201906
  15. CLOZAPINE ARROW 25 MG TABLETS BREAKABLE [Interacting]
     Active Substance: CLOZAPINE
     Dosage: 1 DOSAGE FORM, DAILY
     Route: 048
     Dates: start: 20200813
  16. PAROXETINE. [Interacting]
     Active Substance: PAROXETINE
     Dosage: 20 MILLIGRAM EVERY OTHER DAY FOR 10 DAYS
     Route: 048
     Dates: start: 20200625
  17. CLOZAPINE ARROW 25 MG TABLETS BREAKABLE [Suspect]
     Active Substance: CLOZAPINE
     Indication: SCHIZOPHRENIA
     Dosage: 1 DOSAGE FORM, DAILY
     Route: 048
     Dates: start: 202006

REACTIONS (3)
  - Antipsychotic drug level increased [Not Recovered/Not Resolved]
  - Drug level increased [Not Recovered/Not Resolved]
  - Drug interaction [Unknown]

NARRATIVE: CASE EVENT DATE: 202006
